FAERS Safety Report 5995593-7 (Version None)
Quarter: 2008Q4

REPORT INFORMATION
  Report Type: 
  Country: None (occurrence: None)
  Receive Date: 20081212
  Receipt Date: 20080929
  Transmission Date: 20090506
  Serious: No
  Sender: FDA-Public Use
  Company Number: US-ABBOTT-08P-163-0479315-00

PATIENT
  Sex: Male
  Weight: 75.818 kg

DRUGS (2)
  1. HUMIRA [Suspect]
     Indication: PSORIATIC ARTHROPATHY
     Route: 050
     Dates: start: 20060101, end: 20080917
  2. TOPICAL STEROID [Concomitant]
     Indication: PSORIASIS
     Route: 061

REACTIONS (2)
  - HERPES ZOSTER [None]
  - ROSACEA [None]
